FAERS Safety Report 9197520 (Version 1)
Quarter: 2013Q1

REPORT INFORMATION
  Report Type: Spontaneous
  Country: LV (occurrence: LV)
  Receive Date: 20130328
  Receipt Date: 20130328
  Transmission Date: 20140127
  Serious: Yes (Other)
  Sender: FDA-Public Use
  Company Number: LV-GLAXOSMITHKLINE-B0870215A

PATIENT
  Age: 89 Year
  Sex: Male

DRUGS (1)
  1. COMBODART [Suspect]
     Indication: BENIGN PROSTATIC HYPERPLASIA
     Route: 048
     Dates: start: 20100907, end: 20121016

REACTIONS (1)
  - Prostate cancer [Not Recovered/Not Resolved]
